FAERS Safety Report 8138359-4 (Version None)
Quarter: 2012Q1

REPORT INFORMATION
  Report Type: 
  Country: None (occurrence: None)
  Receive Date: 20120215
  Receipt Date: 20120206
  Transmission Date: 20120608
  Serious: Yes (Hospitalization)
  Sender: FDA-Public Use
  Company Number: IL-TEVA-321403ISR

PATIENT
  Age: 74 Year
  Sex: Female

DRUGS (7)
  1. ASPIRIN [Concomitant]
     Dosage: 100MG DAILY
     Route: 065
  2. FLUTINE [Suspect]
     Indication: DEPRESSION
     Dosage: 20 MILLIGRAM; 20MG DAILY
     Route: 065
  3. OMEPRADEX [Concomitant]
     Dosage: 20MG DAILY
     Route: 065
  4. PROPOXYPHENE NAPSYLATE W/ ACETAMINOPHEN [Suspect]
     Indication: PROCEDURAL PAIN
     Dosage: PROPOXYPHENE NAPSYLATE 40MG/ACETAMINOPHEN 500MG; PROPOXYPHENE NAPSYLATE 120-160MG DAILY
     Route: 065
  5. PRAVASTATIN [Concomitant]
     Dosage: 20MG DAILY
     Route: 065
  6. ENALAPRIL MALEATE [Concomitant]
     Dosage: 20MG DAILY
     Route: 065
  7. BISOPROLOL FUMARATE [Concomitant]
     Dosage: 2.5MG DAILY; INCREASED TO 5 MG/DAY ON DISCHARGE
     Route: 065

REACTIONS (3)
  - TORSADE DE POINTES [None]
  - ELECTROCARDIOGRAM QT PROLONGED [None]
  - HYPOKALAEMIA [None]
